FAERS Safety Report 10360811 (Version 1)
Quarter: 2014Q3

REPORT INFORMATION
  Report Type: Spontaneous
  Country: US (occurrence: US)
  Receive Date: 20140804
  Receipt Date: 20140804
  Transmission Date: 20150326
  Serious: No
  Sender: FDA-Public Use
  Company Number: US-PFIZER INC-2014213798

PATIENT
  Age: 60 Year
  Sex: Female
  Weight: 78.91 kg

DRUGS (1)
  1. LYRICA [Suspect]
     Active Substance: PREGABALIN
     Indication: NEUROPATHY PERIPHERAL
     Dosage: 50 MG, DAILY
     Dates: start: 201406

REACTIONS (4)
  - Myalgia [Unknown]
  - Musculoskeletal pain [Unknown]
  - Neck pain [Unknown]
  - Headache [Unknown]

NARRATIVE: CASE EVENT DATE: 201407
